FAERS Safety Report 7518908-7 (Version None)
Quarter: 2011Q2

REPORT INFORMATION
  Report Type: 
  Country: None (occurrence: None)
  Receive Date: 20110602
  Receipt Date: 20110531
  Transmission Date: 20111010
  Serious: Yes (Other)
  Sender: FDA-Public Use
  Company Number: US-PFIZER INC-2008095696

PATIENT
  Sex: Female

DRUGS (8)
  1. PLAVIX [Concomitant]
     Dosage: UNK
  2. ASPIRIN [Concomitant]
  3. METOPROLOL [Concomitant]
     Dosage: UNK
  4. CELEXA [Concomitant]
     Dosage: UNK
  5. LIPITOR [Suspect]
     Indication: CARDIAC DISORDER
     Dosage: 20 MG, 1X/DAY
     Route: 048
  6. PROTONIX [Suspect]
     Indication: GASTROOESOPHAGEAL REFLUX DISEASE
     Dosage: 40 MG, 1X/DAY
     Route: 048
  7. TRICOR [Concomitant]
     Dosage: UNK
  8. PROCARDIA XL [Concomitant]

REACTIONS (6)
  - PALPITATIONS [None]
  - BLOOD TRIGLYCERIDES INCREASED [None]
  - BLOOD POTASSIUM DECREASED [None]
  - ASTHENIA [None]
  - HYPOACUSIS [None]
  - BLOOD POTASSIUM INCREASED [None]
